FAERS Safety Report 9065954 (Version 1)
Quarter: 2013Q1

REPORT INFORMATION
  Report Type: Report from Study
  Country: US (occurrence: US)
  Receive Date: 20130131
  Receipt Date: 20130131
  Transmission Date: 20140127
  Serious: No
  Sender: FDA-Public Use
  Company Number: US-ABBOTT-12P-163-1017195-00

PATIENT
  Age: 31 Year
  Sex: Female

DRUGS (4)
  1. HUMIRA [Suspect]
     Indication: CROHN^S DISEASE
     Dates: start: 201210
  2. SINGULAIR [Concomitant]
     Indication: HYPERSENSITIVITY
  3. CALCIUM [Concomitant]
     Indication: MINERAL SUPPLEMENTATION
  4. IRON [Concomitant]
     Indication: MINERAL SUPPLEMENTATION

REACTIONS (1)
  - Nasopharyngitis [Not Recovered/Not Resolved]
